FAERS Safety Report 9074459 (Version 1)
Quarter: 2013Q1

REPORT INFORMATION
  Report Type: Report from Study
  Country: US (occurrence: US)
  Receive Date: 20130129
  Receipt Date: 20130129
  Transmission Date: 20140127
  Serious: No
  Sender: FDA-Public Use
  Company Number: US-ABBOTT-12P-163-0927322-00

PATIENT
  Age: 53 Year
  Sex: Female

DRUGS (5)
  1. HUMIRA 40 MG/0.8 ML PEN [Suspect]
     Indication: PSORIASIS
     Dates: start: 20120312, end: 20120312
  2. HUMIRA 40 MG/0.8 ML PEN [Suspect]
     Dates: start: 20120319, end: 20120319
  3. HUMIRA 40 MG/0.8 ML PEN [Suspect]
     Dates: start: 20120402
  4. METOPROLOL [Concomitant]
     Indication: HYPERTENSION
  5. LISINOPRIL [Concomitant]
     Indication: HYPERTENSION

REACTIONS (1)
  - Injection site pain [Recovered/Resolved]
